FAERS Safety Report 6096081-2 (Version None)
Quarter: 2009Q1

REPORT INFORMATION
  Report Type: 
  Country: None (occurrence: None)
  Receive Date: 20090227
  Receipt Date: 20080827
  Transmission Date: 20090719
  Serious: No
  Sender: FDA-Public Use
  Company Number: A0744724A

PATIENT
  Age: 51 Year
  Sex: Female

DRUGS (4)
  1. LAMICTAL [Suspect]
     Indication: EPILEPSY
     Dosage: 150MG TWICE PER DAY
     Route: 048
  2. PHENOBARBITAL TAB [Concomitant]
  3. ASACOL [Concomitant]
  4. LAMOTRIGINE [Concomitant]
     Indication: EPILEPSY
     Dosage: 150MG TWICE PER DAY
     Route: 048
     Dates: start: 20080825

REACTIONS (3)
  - BURNING SENSATION [None]
  - RASH [None]
  - RASH ERYTHEMATOUS [None]
